FAERS Safety Report 4864941-3 (Version None)
Quarter: 2005Q4

REPORT INFORMATION
  Report Type: 
  Country: None (occurrence: None)
  Receive Date: 20051201
  Receipt Date: 20050716
  Transmission Date: 20060501
  Serious: No
  Sender: FDA-Public Use
  Company Number: 2005PV000441

PATIENT
  Age: 45 Year
  Sex: Male
  Weight: 68.0396 kg

DRUGS (9)
  1. BYETTA [Suspect]
     Indication: DIABETES MELLITUS NON-INSULIN-DEPENDENT
     Dosage: 5 MCG;BID;SC
     Route: 058
     Dates: start: 20050622
  2. LIPITOR [Concomitant]
  3. ECOTRIN [Concomitant]
  4. VITAMIN B COMPLEX CAP [Concomitant]
  5. PALMETTO [Concomitant]
  6. OMEGA 3 [Concomitant]
  7. GLUCOSAMINE [Concomitant]
  8. COLACE [Concomitant]
  9. CITRUCEL [Concomitant]

REACTIONS (4)
  - CONSTIPATION [None]
  - ERUCTATION [None]
  - FLATULENCE [None]
  - NAUSEA [None]
